FAERS Safety Report 14311968 (Version 1)
Quarter: 2017Q4

REPORT INFORMATION
  Report Type: Spontaneous
  Country: US (occurrence: US)
  Receive Date: 20171221
  Receipt Date: 20171221
  Transmission Date: 20180321
  Serious: Yes (Hospitalization)
  Sender: FDA-Public Use
  Company Number: US-UNITED THERAPEUTICS-UNT-2017-017631

PATIENT
  Sex: Male

DRUGS (1)
  1. REMODULIN [Suspect]
     Active Substance: TREPROSTINIL
     Indication: PULMONARY ARTERIAL HYPERTENSION
     Dosage: 0.0315 ?G/KG, CONTINUING
     Route: 058
     Dates: start: 20171030

REACTIONS (2)
  - Dizziness [Unknown]
  - Device use issue [Unknown]

NARRATIVE: CASE EVENT DATE: 2017
